FAERS Safety Report 8446262-5 (Version None)
Quarter: 2012Q2

REPORT INFORMATION
  Report Type: 
  Country: None (occurrence: None)
  Receive Date: 20120618
  Receipt Date: 20120604
  Transmission Date: 20120825
  Serious: Yes (Other)
  Sender: FDA-Public Use
  Company Number: US-ACTELION-A-US2011-43406

PATIENT

DRUGS (1)
  1. TRACLEER [Suspect]
     Indication: PULMONARY ARTERIAL HYPERTENSION
     Dosage: UNK
     Route: 048
     Dates: start: 20090121

REACTIONS (5)
  - CHEMOTHERAPY [None]
  - COUGH [None]
  - OXYGEN SATURATION DECREASED [None]
  - MYELODYSPLASTIC SYNDROME [None]
  - DIZZINESS [None]
